FAERS Safety Report 5931298-6 (Version None)
Quarter: 2008Q4

REPORT INFORMATION
  Report Type: 
  Country: None (occurrence: None)
  Receive Date: 20081024
  Receipt Date: 20081024
  Transmission Date: 20090506
  Serious: Yes (Death)
  Sender: FDA-Public Use
  Company Number: None

PATIENT
  Sex: Female
  Weight: 118.1 kg

DRUGS (3)
  1. FLUOROURACIL [Suspect]
     Dosage: 1075 MG
     Dates: start: 20081011, end: 20081011
  2. CYCLOPHOSPHAMIDE [Suspect]
     Dosage: 1075 MG
  3. EPIRUBICIN [Suspect]
     Dosage: 216 MG

REACTIONS (5)
  - BLOOD DISORDER [None]
  - CARDIAC ARREST [None]
  - CARDIOVASCULAR DISORDER [None]
  - CEREBROVASCULAR ACCIDENT [None]
  - SUDDEN DEATH [None]
